FAERS Safety Report 24229949 (Version 2)
Quarter: 2025Q2

REPORT INFORMATION
  Report Type: Spontaneous
  Country: EU (occurrence: EU)
  Receive Date: 20240820
  Receipt Date: 20250402
  Transmission Date: 20250716
  Serious: Yes (Death)
  Sender: BAUSCH AND LOMB
  Company Number: DE-MLMSERVICE-20240530-PI081102-00306-1

PATIENT
  Age: 5 Month
  Sex: Male

DRUGS (8)
  1. PREDNISOLONE ACETATE [Suspect]
     Active Substance: PREDNISOLONE ACETATE
     Indication: Immunosuppression
     Route: 065
  2. PREDNISOLONE ACETATE [Suspect]
     Active Substance: PREDNISOLONE ACETATE
  3. TACROLIMUS [Suspect]
     Active Substance: TACROLIMUS
     Indication: Immunosuppression
     Route: 065
  4. TACROLIMUS [Suspect]
     Active Substance: TACROLIMUS
  5. HYDROCORTISONE [Suspect]
     Active Substance: HYDROCORTISONE
     Indication: Systemic inflammatory response syndrome
     Route: 065
  6. BASILIXIMAB [Suspect]
     Active Substance: BASILIXIMAB
     Indication: Immunosuppression
     Route: 065
  7. BASILIXIMAB [Suspect]
     Active Substance: BASILIXIMAB
  8. AMPHOTERICIN B [Concomitant]
     Active Substance: AMPHOTERICIN B
     Indication: Inflammation
     Route: 065

REACTIONS (8)
  - Sepsis [Fatal]
  - Aspergillus infection [Fatal]
  - Haemothorax [Fatal]
  - Hepatic failure [Fatal]
  - Small intestinal perforation [Fatal]
  - Bronchopulmonary aspergillosis [Fatal]
  - Multiple organ dysfunction syndrome [Fatal]
  - Renal failure [Fatal]
